FAERS Safety Report 6379464-2 (Version None)
Quarter: 2009Q3

REPORT INFORMATION
  Report Type: 
  Country: None (occurrence: None)
  Receive Date: 20090928
  Receipt Date: 20090914
  Transmission Date: 20100115
  Serious: Yes (Hospitalization, Other)
  Sender: FDA-Public Use
  Company Number: B0593733A

PATIENT
  Age: 50 Year
  Sex: Male

DRUGS (2)
  1. ZEFIX [Suspect]
     Indication: HEPATIC CIRRHOSIS
     Route: 048
     Dates: start: 20010101
  2. HEPSERA [Concomitant]
     Indication: HEPATIC CIRRHOSIS
     Route: 048

REACTIONS (7)
  - AMINOACIDURIA [None]
  - BLOOD URIC ACID [None]
  - FANCONI SYNDROME [None]
  - METABOLIC ACIDOSIS [None]
  - MULTIPLE FRACTURES [None]
  - OSTEOMALACIA [None]
  - RENAL GLYCOSURIA [None]
